FAERS Safety Report 7082819-4 (Version None)
Quarter: 2010Q4

REPORT INFORMATION
  Report Type: 
  Country: None (occurrence: None)
  Receive Date: 20101001
  Receipt Date: 20100728
  Transmission Date: 20110411
  Serious: No
  Sender: FDA-Public Use
  Company Number: 1000015400

PATIENT
  Age: 59 Year
  Sex: Female

DRUGS (8)
  1. BYSTOLIC [Suspect]
     Indication: HYPERTENSION
     Dosage: 5 MG (5 MG, 1 IN 1 D) ORAL 2.5 MG (2,5 MG, 1 IN 1 D), ORAL
     Route: 048
     Dates: start: 20100301, end: 20100401
  2. BYSTOLIC [Suspect]
     Indication: HYPERTENSION
     Dosage: 5 MG (5 MG, 1 IN 1 D) ORAL 2.5 MG (2,5 MG, 1 IN 1 D), ORAL
     Route: 048
     Dates: start: 20100401
  3. VITAMIN D [Concomitant]
  4. VALTREX [Concomitant]
  5. ASPIRIN [Concomitant]
  6. LIPITOR [Concomitant]
  7. SAVELLA [Concomitant]
  8. ZOMIG [Concomitant]

REACTIONS (1)
  - OEDEMA PERIPHERAL [None]
